FAERS Safety Report 10009965 (Version 2)
Quarter: 2014Q1

REPORT INFORMATION
  Report Type: Spontaneous
  Country: US (occurrence: US)
  Receive Date: 20140312
  Receipt Date: 20140312
  Transmission Date: 20141002
  Serious: No
  Sender: FDA-Public Use
  Company Number: US-INCYTE CORPORATION-2012IN002605

PATIENT
  Age: 69 Year
  Sex: Male

DRUGS (6)
  1. JAKAFI [Suspect]
     Indication: MYELOPROLIFERATIVE DISORDER
     Dosage: 15 MG, BID
     Route: 048
     Dates: start: 20120917
  2. ALLOPURINOL [Concomitant]
  3. ASPIRIN [Concomitant]
     Dosage: 81 MG
  4. HYDROXYUREA [Concomitant]
  5. ZYRTEC [Concomitant]
  6. FENTANYL [Concomitant]

REACTIONS (3)
  - Arthralgia [Unknown]
  - Back pain [Unknown]
  - Anaemia [Unknown]
